FAERS Safety Report 5254038-5 (Version None)
Quarter: 2007Q1

REPORT INFORMATION
  Report Type: 
  Country: None (occurrence: None)
  Receive Date: 20061201
  Receipt Date: 20060809
  Transmission Date: 20070707
  Serious: No
  Sender: FDA-Public Use
  Company Number: 2006PV019159

PATIENT
  Age: 53 Year
  Sex: Male
  Weight: 87.9978 kg

DRUGS (14)
  1. BYETTA [Suspect]
     Indication: DIABETES MELLITUS NON-INSULIN-DEPENDENT
     Dosage: SEE IMAGE
     Route: 058
     Dates: start: 20060706, end: 20060805
  2. BYETTA [Suspect]
     Indication: DIABETES MELLITUS NON-INSULIN-DEPENDENT
     Dosage: SEE IMAGE
     Route: 058
     Dates: start: 20060806
  3. GLUCOVANCE [Concomitant]
  4. PHENOBARBITAL TAB [Concomitant]
  5. ALBUTEROL [Concomitant]
  6. LITHIUM CARBONATE [Concomitant]
  7. SYNTHROID [Concomitant]
  8. CRESTOR [Concomitant]
  9. TRICOR [Concomitant]
  10. ZYPREXA [Concomitant]
  11. COGENTIN [Concomitant]
  12. ALLEGRA [Concomitant]
  13. MINOCYCLINE HCL [Concomitant]
  14. LASIX [Concomitant]

REACTIONS (8)
  - ABDOMINAL PAIN [None]
  - ANOREXIA [None]
  - BLOOD GLUCOSE INCREASED [None]
  - DIARRHOEA [None]
  - HEADACHE [None]
  - HYPERHIDROSIS [None]
  - PYREXIA [None]
  - WEIGHT DECREASED [None]
